FAERS Safety Report 6459129-9 (Version None)
Quarter: 2009Q4

REPORT INFORMATION
  Report Type: 
  Country: None (occurrence: None)
  Receive Date: 20091127
  Receipt Date: 20091125
  Transmission Date: 20100525
  Serious: Yes (Hospitalization)
  Sender: FDA-Public Use
  Company Number: US-BRISTOL-MYERS SQUIBB COMPANY-14851331

PATIENT
  Age: 18 Year
  Sex: Female
  Weight: 63 kg

DRUGS (1)
  1. ABILIFY [Suspect]
     Dosage: DURATION OF THERAPY -APPROXIMATELY 4 TO 5 YEARS.

REACTIONS (1)
  - HEPATIC FAILURE [None]
